FAERS Safety Report 20915415 (Version 3)
Quarter: 2022Q3

REPORT INFORMATION
  Report Type: Spontaneous
  Country: US (occurrence: US)
  Receive Date: 20220604
  Receipt Date: 20220812
  Transmission Date: 20221027
  Serious: No
  Sender: FDA-Public Use
  Company Number: US-SA-SAC20220525001244

PATIENT
  Age: 8 Year
  Sex: Female

DRUGS (1)
  1. DUPIXENT [Suspect]
     Active Substance: DUPILUMAB
     Indication: Dermatitis atopic
     Dosage: 200 MG OTHER
     Route: 058
     Dates: start: 202203

REACTIONS (3)
  - Injection site pain [Unknown]
  - Product prescribing error [Unknown]
  - Device use issue [Unknown]

NARRATIVE: CASE EVENT DATE: 20220301
